FAERS Safety Report 9599890 (Version 1)
Quarter: 2013Q4

REPORT INFORMATION
  Report Type: Spontaneous
  Country: US (occurrence: US)
  Receive Date: 20131004
  Receipt Date: 20131004
  Transmission Date: 20140711
  Serious: No
  Sender: FDA-Public Use
  Company Number: US-AMGEN-USASP2013031763

PATIENT
  Age: 46 Year
  Sex: Female
  Weight: 79.37 kg

DRUGS (12)
  1. ENBREL [Suspect]
     Indication: PRODUCT USED FOR UNKNOWN INDICATION
     Dosage: 25 MG, 2 TIMES/WK, 72-96 HOURS APART
     Route: 058
  2. PLAQUENIL                          /00072602/ [Concomitant]
     Dosage: 200 MG, UNK
  3. B12                                /00056201/ [Concomitant]
     Dosage: 1 MG, UNK
  4. PRAVASTATIN [Concomitant]
     Dosage: 10 MG, UNK
  5. VITAMIN D                          /00107901/ [Concomitant]
     Dosage: 400 UNIT, UNK
  6. AMITIZA [Concomitant]
     Dosage: 24 MUG, UNK
  7. FLONASE [Concomitant]
     Dosage: 0.05 %, UNK
  8. METHOTREXATE [Concomitant]
     Dosage: 2.5 MG, UNK
  9. SYNTHROID [Concomitant]
     Dosage: 25 MUG, UNK
  10. FOLIC ACID [Concomitant]
     Dosage: 1 MG, UNK
  11. IBUPROFEN [Concomitant]
     Dosage: 200 MG, UNK
  12. CALCIUM D                          /00944201/ [Concomitant]
     Dosage: UNK

REACTIONS (1)
  - Sinusitis [Unknown]
